FAERS Safety Report 6112612-8 (Version None)
Quarter: 2009Q1

REPORT INFORMATION
  Report Type: 
  Country: None (occurrence: None)
  Receive Date: 20090312
  Receipt Date: 20090311
  Transmission Date: 20090719
  Serious: Yes (Life-Threatening, Other)
  Sender: FDA-Public Use
  Company Number: GB-CELGENEUS-167-C5013-06110604

PATIENT
  Sex: Female
  Weight: 56 kg

DRUGS (8)
  1. CC-5013 [Suspect]
     Indication: MYELODYSPLASTIC SYNDROME
     Route: 048
     Dates: start: 20060510
  2. PLACEBO FOR CC-5013 [Suspect]
     Indication: MYELODYSPLASTIC SYNDROME
     Route: 048
  3. NEUPOGEN [Concomitant]
     Indication: NEUTROPHIL COUNT DECREASED
     Route: 058
     Dates: start: 20060701, end: 20061101
  4. LOPERAMIDE HCL [Concomitant]
     Route: 048
     Dates: start: 20060629, end: 20061025
  5. IBUPROFEN [Concomitant]
     Route: 048
     Dates: start: 20060601
  6. DAKTARIN ORAL GEL [Concomitant]
     Route: 061
     Dates: start: 20060630
  7. DAKTARIN ORAL GEL [Concomitant]
  8. DAKTARIN ORAL GEL [Concomitant]
     Indication: ORAL CANDIDIASIS

REACTIONS (1)
  - NEUTROPENIA [None]
